FAERS Safety Report 7725097-2 (Version None)
Quarter: 2011Q3

REPORT INFORMATION
  Report Type: 
  Country: None (occurrence: None)
  Receive Date: 20110901
  Receipt Date: 20110826
  Transmission Date: 20111222
  Serious: Yes (Other)
  Sender: FDA-Public Use
  Company Number: MX-SANOFI-AVENTIS-2011SA055326

PATIENT
  Age: 45 Year
  Sex: Male

DRUGS (4)
  1. ALL OTHER THERAPEUTIC PRODUCTS [Concomitant]
     Route: 048
  2. HERBALIFE PRODUCTS [Concomitant]
  3. LANTUS [Suspect]
     Indication: TYPE 2 DIABETES MELLITUS
     Route: 058
     Dates: start: 20110201
  4. INSULIN [Suspect]
     Indication: TYPE 2 DIABETES MELLITUS
     Route: 058
     Dates: start: 20110201

REACTIONS (2)
  - NEUROPATHY PERIPHERAL [None]
  - HYPERGLYCAEMIA [None]
